FAERS Safety Report 26004195 (Version 1)
Quarter: 2025Q4

REPORT INFORMATION
  Report Type: Spontaneous
  Country: US (occurrence: US)
  Receive Date: 20251106
  Receipt Date: 20251106
  Transmission Date: 20260117
  Serious: No
  Sender: SANOFI AVENTIS
  Company Number: US-SA-2025SA325064

PATIENT
  Age: 47 Year
  Sex: Female
  Weight: 141.97 kg

DRUGS (6)
  1. DUPIXENT [Suspect]
     Active Substance: DUPILUMAB
     Indication: Illness
     Dosage: 600 MG, 1X
     Route: 058
     Dates: start: 20251024, end: 20251024
  2. ATOMOXETINE HYDROCHLORIDE [Concomitant]
     Active Substance: ATOMOXETINE HYDROCHLORIDE
  3. SINGULAIR [Concomitant]
     Active Substance: MONTELUKAST SODIUM
  4. MELOXICAM [Concomitant]
     Active Substance: MELOXICAM
  5. CLARITIN [Concomitant]
     Active Substance: LORATADINE
  6. OMEPRAZOLE [Concomitant]
     Active Substance: OMEPRAZOLE

REACTIONS (13)
  - Pyrexia [Unknown]
  - Somnolence [Unknown]
  - Incoherent [Unknown]
  - Nausea [Unknown]
  - Gastrointestinal disorder [Unknown]
  - Headache [Unknown]
  - Myalgia [Unknown]
  - Injection site streaking [Unknown]
  - Fatigue [Unknown]
  - Lymphadenopathy [Unknown]
  - Contusion [Unknown]
  - Serum sickness [Unknown]
  - Arthralgia [Unknown]

NARRATIVE: CASE EVENT DATE: 20251001
